FAERS Safety Report 8420911-X (Version None)
Quarter: 2012Q2

REPORT INFORMATION
  Report Type: 
  Country: None (occurrence: None)
  Receive Date: 20120608
  Receipt Date: 20120604
  Transmission Date: 20120825
  Serious: Yes (Other)
  Sender: FDA-Public Use
  Company Number: BR-PFIZER INC-2012127854

PATIENT
  Age: 46 Year
  Sex: Male
  Weight: 90 kg

DRUGS (7)
  1. VIAGRA [Suspect]
     Indication: ERECTILE DYSFUNCTION
     Dosage: 50 MG, UNK
     Dates: start: 20110101
  2. VIAGRA [Interacting]
     Dosage: 100 MG, UNK
  3. ASPIRIN [Interacting]
     Indication: BLOOD CHOLESTEROL
     Dosage: 100 MG, UNK
  4. ASCORBIC ACID [Concomitant]
  5. OLMESARTAN MEDOXOMIL [Interacting]
     Indication: HYPERTENSION
     Dosage: 20 MG, UNK
  6. CENTRUM [Concomitant]
  7. CRESTOR [Interacting]
     Indication: BLOOD CHOLESTEROL
     Dosage: 10 MG, UNK

REACTIONS (14)
  - BLOOD CHOLESTEROL INCREASED [None]
  - LIBIDO DECREASED [None]
  - MIGRAINE [None]
  - ALANINE AMINOTRANSFERASE INCREASED [None]
  - FEELING HOT [None]
  - ERYTHEMA [None]
  - DRUG INTERACTION [None]
  - VOMITING [None]
  - HEADACHE [None]
  - DYSGEUSIA [None]
  - HANGOVER [None]
  - EXOPHTHALMOS [None]
  - ERECTILE DYSFUNCTION [None]
  - DRUG EFFECT DECREASED [None]
